FAERS Safety Report 9558313 (Version 3)
Quarter: 2014Q2

REPORT INFORMATION
  Report Type: Spontaneous
  Country: US (occurrence: US)
  Receive Date: 20130926
  Receipt Date: 20140627
  Transmission Date: 20141212
  Serious: Yes (Death, Hospitalization, Other)
  Sender: FDA-Public Use
  Company Number: US-009507513-1309USA012832

PATIENT
  Sex: Male
  Weight: 81.63 kg

DRUGS (7)
  1. JANUVIA [Suspect]
     Indication: TYPE 2 DIABETES MELLITUS
     Dosage: 100 MG, QD
     Route: 048
     Dates: start: 20100901
  2. JANUVIA [Suspect]
     Dosage: 100 MG, BID
     Route: 048
     Dates: start: 20100902, end: 20110810
  3. JANUVIA [Suspect]
     Dosage: 150 MG, QD
     Route: 048
     Dates: start: 20110810, end: 20120125
  4. GLIPIZIDE [Concomitant]
     Indication: TYPE 2 DIABETES MELLITUS
     Dosage: 10 MG, BID
     Route: 048
  5. ASPIRIN [Concomitant]
     Indication: HYPERLIPIDAEMIA
     Dosage: 81 MG, QD
  6. LEVOXYL [Concomitant]
     Indication: HYPOTHYROIDISM
     Dosage: 125-137 MICROGRAM, QD
     Route: 048
  7. METFORMIN [Concomitant]
     Dosage: 1 G, BID

REACTIONS (27)
  - Pancreatic carcinoma metastatic [Fatal]
  - Stent placement [Unknown]
  - Metastases to lung [Unknown]
  - Metastases to liver [Unknown]
  - Duodenal ulcer [Unknown]
  - Cardio-respiratory arrest [Fatal]
  - Renal failure chronic [Not Recovered/Not Resolved]
  - Renal failure acute [Recovered/Resolved]
  - Bile duct stent insertion [Unknown]
  - Inappropriate schedule of drug administration [Unknown]
  - Incorrect dose administered [Unknown]
  - Decubitus ulcer [Unknown]
  - Skin lesion excision [Unknown]
  - Insulin-requiring type 2 diabetes mellitus [Unknown]
  - Arteriosclerosis [Unknown]
  - Chronic obstructive pulmonary disease [Unknown]
  - Cardiomyopathy [Unknown]
  - Diverticulum [Unknown]
  - Prostatomegaly [Unknown]
  - Spinal osteoarthritis [Unknown]
  - Tonsillectomy [Unknown]
  - Stent placement [Unknown]
  - Cardiac failure congestive [Unknown]
  - Malnutrition [Recovering/Resolving]
  - Anaemia [Unknown]
  - Oedema peripheral [Unknown]
  - Constipation [Unknown]
